FAERS Safety Report 15914004 (Version 2)
Quarter: 2021Q1

REPORT INFORMATION
  Report Type: Spontaneous
  Country: US (occurrence: US)
  Receive Date: 20190204
  Receipt Date: 20210201
  Transmission Date: 20210419
  Serious: Yes (Hospitalization, Other)
  Sender: FDA-Public Use
  Company Number: US-ABBVIE-18K-163-2535124-00

PATIENT
  Age: 61 Year
  Sex: Male

DRUGS (3)
  1. HUMIRA [Suspect]
     Active Substance: ADALIMUMAB
     Indication: RHEUMATOID ARTHRITIS
     Route: 058
     Dates: end: 2015
  2. XELJANZ [Suspect]
     Active Substance: TOFACITINIB CITRATE
     Indication: RHEUMATOID ARTHRITIS
     Route: 048
     Dates: start: 201609
  3. PLAQUENIL [Concomitant]
     Active Substance: HYDROXYCHLOROQUINE SULFATE
     Indication: PRODUCT USED FOR UNKNOWN INDICATION

REACTIONS (13)
  - Lung abscess [Unknown]
  - Cardiac pacemaker insertion [Recovered/Resolved with Sequelae]
  - Glaucoma [Not Recovered/Not Resolved]
  - Weight decreased [Unknown]
  - Aptyalism [Unknown]
  - Pharyngeal disorder [Unknown]
  - Pharyngeal swelling [Unknown]
  - Infective myositis [Unknown]
  - Sialoadenitis [Unknown]
  - Dehydration [Unknown]
  - COVID-19 [Recovered/Resolved with Sequelae]
  - Malaise [Unknown]
  - Dysphagia [Unknown]

NARRATIVE: CASE EVENT DATE: 2012
